FAERS Safety Report 10926067 (Version 1)
Quarter: 2015Q1

REPORT INFORMATION
  Report Type: Spontaneous
  Country: US (occurrence: US)
  Receive Date: 20150318
  Receipt Date: 20150318
  Transmission Date: 20150721
  Serious: No
  Sender: FDA-Public Use
  Company Number: US-TEVA-548130USA

PATIENT
  Age: 12 Year
  Sex: Female

DRUGS (1)
  1. CLARAVIS [Suspect]
     Active Substance: ISOTRETINOIN
     Route: 048

REACTIONS (2)
  - Viral infection [Unknown]
  - Drug diversion [Unknown]

NARRATIVE: CASE EVENT DATE: 201501
